FAERS Safety Report 24055847 (Version 1)
Quarter: 2024Q3

REPORT INFORMATION
  Report Type: Spontaneous
  Country: US (occurrence: None)
  Receive Date: 20240703
  Receipt Date: 20240703
  Transmission Date: 20241016
  Serious: Yes (unspecified)
  Sender: Public
  Company Number: None

PATIENT
  Age: 36 Year
  Sex: Male
  Weight: 61.69 kg

DRUGS (1)
  1. HUMIRA [Suspect]
     Active Substance: ADALIMUMAB
     Indication: Systemic lupus erythematosus

REACTIONS (6)
  - Chest discomfort [None]
  - Dizziness [None]
  - Therapy interrupted [None]
  - Adverse drug reaction [None]
  - Dizziness [None]
  - Costochondritis [None]

NARRATIVE: CASE EVENT DATE: 20240603
